FAERS Safety Report 8727667 (Version 3)
Quarter: 2012Q4

REPORT INFORMATION
  Report Type: 
  Country: US (occurrence: US)
  Receive Date: 20120816
  Receipt Date: 20121008
  Transmission Date: 20130627
  Serious: No
  Sender: FDA-Public Use
  Company Number: US-PFIZER INC-2012197363

PATIENT
  Age: 45 Year
  Sex: Male
  Weight: 99.77 kg

DRUGS (5)
  1. LYRICA [Suspect]
     Indication: NECK PAIN
     Dosage: 100 mg, 2x/day
     Dates: start: 2011
  2. LYRICA [Suspect]
     Indication: BACK PAIN
  3. PRISTIQ [Concomitant]
     Dosage: 50 mg, daily
  4. SOMA [Concomitant]
     Dosage: 250 mg, as needed
  5. METHADONE [Concomitant]
     Dosage: total of 30 mg in a day

REACTIONS (4)
  - Drug withdrawal syndrome [Unknown]
  - Anger [Unknown]
  - Musculoskeletal discomfort [Unknown]
  - Back disorder [Unknown]
